FAERS Safety Report 4893044-7 (Version None)
Quarter: 2005Q4

REPORT INFORMATION
  Report Type: 
  Country: None (occurrence: None)
  Receive Date: 20051223
  Receipt Date: 20051004
  Transmission Date: 20060501
  Serious: Yes (Other)
  Sender: FDA-Public Use
  Company Number: 218099

PATIENT
  Age: 57 Year
  Sex: Female
  Weight: 75.7 kg

DRUGS (9)
  1. AVASTIN [Suspect]
     Indication: BREAST CANCER METASTATIC
     Dosage: 375 MG, Q2W, INTRAVENOUS
     Route: 042
  2. XELODA [Concomitant]
  3. ATENOLOL [Concomitant]
  4. DESIPRAMINE (DESIPRAMINE HYDROCHLORIDE) [Concomitant]
  5. EVISTA [Concomitant]
  6. MULTIVITAMIN [Concomitant]
  7. CALCIUM (CALCIUM NOS) [Concomitant]
  8. VITAMIN C (ASCORBIC ACID) [Concomitant]
  9. FIBER (DIETARY FIBER) [Concomitant]

REACTIONS (1)
  - EYE HAEMORRHAGE [None]
